FAERS Safety Report 15821325 (Version 1)
Quarter: 2019Q1

REPORT INFORMATION
  Report Type: Spontaneous
  Country: US (occurrence: US)
  Receive Date: 20190112
  Receipt Date: 20190112
  Transmission Date: 20190417
  Serious: Yes (Disabling)
  Sender: FDA-Public Use
  Company Number: None

PATIENT
  Age: 43 Year
  Sex: Female
  Weight: 50.85 kg

DRUGS (1)
  1. PANTOPRAZOLE TAB 20MG [Suspect]
     Active Substance: PANTOPRAZOLE SODIUM
     Indication: GASTROOESOPHAGEAL REFLUX DISEASE
     Dosage: ?          QUANTITY:1 TABLET(S);?
     Route: 048
     Dates: start: 20181024, end: 20181129

REACTIONS (7)
  - Dysuria [None]
  - Pain [None]
  - Musculoskeletal stiffness [None]
  - Drug ineffective [None]
  - Product dose omission [None]
  - Product substitution issue [None]
  - Muscle disorder [None]

NARRATIVE: CASE EVENT DATE: 20181130
